FAERS Safety Report 19196903 (Version 11)
Quarter: 2021Q3

REPORT INFORMATION
  Report Type: Report from Study
  Country: AU (occurrence: AU)
  Receive Date: 20210430
  Receipt Date: 20210805
  Transmission Date: 20211014
  Serious: Yes (Hospitalization, Other)
  Sender: FDA-Public Use
  Company Number: AU-BIOGEN-2021BI01004518

PATIENT
  Age: 54 Year
  Sex: Female

DRUGS (1)
  1. TYSABRI [Suspect]
     Active Substance: NATALIZUMAB
     Indication: MULTIPLE SCLEROSIS
     Dosage: INFUSED OVER 1 HOUR
     Route: 042
     Dates: start: 20160905

REACTIONS (16)
  - Anxiety [Not Recovered/Not Resolved]
  - Renal lipoma [Not Recovered/Not Resolved]
  - Oophoritis [Not Recovered/Not Resolved]
  - Adenomyosis [Not Recovered/Not Resolved]
  - Procedural pain [Not Recovered/Not Resolved]
  - Sleep disorder [Not Recovered/Not Resolved]
  - Nephrolithiasis [Not Recovered/Not Resolved]
  - Hydrovarium [Not Recovered/Not Resolved]
  - Pain [Recovered/Resolved]
  - Uterine neoplasm [Not Recovered/Not Resolved]
  - Post procedural complication [Not Recovered/Not Resolved]
  - Ovarian neoplasm [Not Recovered/Not Resolved]
  - Uterine infection [Not Recovered/Not Resolved]
  - Body temperature increased [Unknown]
  - Hepatic steatosis [Not Recovered/Not Resolved]
  - Fatigue [Not Recovered/Not Resolved]

NARRATIVE: CASE EVENT DATE: 20210628
